FAERS Safety Report 21274665 (Version 1)
Quarter: 2022Q3

REPORT INFORMATION
  Report Type: Spontaneous
  Country: US (occurrence: None)
  Receive Date: 20220831
  Receipt Date: 20220831
  Transmission Date: 20221027
  Serious: Yes (Other)
  Sender: FDA-Public Use
  Company Number: None

PATIENT
  Age: 52 Year
  Sex: Male
  Weight: 73 kg

DRUGS (1)
  1. XARELTO [Suspect]
     Active Substance: RIVAROXABAN
     Indication: Deep vein thrombosis
     Dates: start: 20201203, end: 20220810

REACTIONS (2)
  - Peripheral artery thrombosis [None]
  - Antiphospholipid syndrome [None]

NARRATIVE: CASE EVENT DATE: 20220808
